FAERS Safety Report 9073899 (Version 1)
Quarter: 2013Q1

REPORT INFORMATION
  Report Type: Report from Study
  Country: US (occurrence: US)
  Receive Date: 20130129
  Receipt Date: 20130129
  Transmission Date: 20140127
  Serious: No
  Sender: FDA-Public Use
  Company Number: US-ABBOTT-12P-163-0929088-00

PATIENT
  Age: 60 Year
  Sex: Female

DRUGS (12)
  1. HUMIRA 40 MG/0.8 ML PEN [Suspect]
     Indication: CROHN^S DISEASE
     Dates: start: 20120417, end: 20120417
  2. HUMIRA 40 MG/0.8 ML PEN [Suspect]
     Dosage: 2ND LOADING DOSE
     Dates: start: 201204
  3. BACLOFEN [Concomitant]
     Indication: MUSCLE SPASMS
     Dosage: 10MG 4 TABS TWICE DAILY
  4. ESTRADIOL [Concomitant]
     Indication: HORMONE REPLACEMENT THERAPY
     Dosage: 2MG DAILY
  5. ESTRADIOL [Concomitant]
     Dosage: .5MG DAILY
  6. METROPROJESTERONE [Concomitant]
     Indication: HORMONE REPLACEMENT THERAPY
     Dosage: 5MG DAILY
  7. LIALDA [Concomitant]
     Indication: CROHN^S DISEASE
     Dosage: 1.2GM TWICE DAILY
  8. MELOXICAM [Concomitant]
     Indication: FIBROMYALGIA
     Dosage: 15MG DAILY
  9. NEXIUM [Concomitant]
     Indication: PROPHYLAXIS AGAINST GASTROINTESTINAL ULCER
     Dosage: 40MG DAILY
  10. ZOLOFT [Concomitant]
     Indication: ANXIETY
     Dosage: 40MG
  11. ZOLOFT [Concomitant]
     Indication: DEPRESSION
  12. SIMVASTATIN [Concomitant]
     Indication: BLOOD CHOLESTEROL INCREASED
     Dosage: 20MG

REACTIONS (3)
  - Injection site bruising [Recovering/Resolving]
  - Injection site pain [Recovered/Resolved]
  - Injection site haemorrhage [Recovered/Resolved]
